FAERS Safety Report 21942274 (Version 1)
Quarter: 2023Q1

REPORT INFORMATION
  Report Type: Report from Study
  Country: US (occurrence: US)
  Receive Date: 20230202
  Receipt Date: 20230202
  Transmission Date: 20230417
  Serious: No
  Sender: FDA-Public Use
  Company Number: US-EXELIXIS-CABO-22056983

PATIENT
  Age: 81 Year
  Sex: Male

DRUGS (1)
  1. CABOMETYX [Suspect]
     Active Substance: CABOZANTINIB S-MALATE
     Indication: Renal cancer
     Dosage: 40 MG, QD
     Route: 048
     Dates: end: 202210

REACTIONS (8)
  - Skin exfoliation [Unknown]
  - Erythema [Unknown]
  - Platelet count decreased [Recovering/Resolving]
  - Gastrointestinal motility disorder [Unknown]
  - Fatigue [Unknown]
  - Constipation [Unknown]
  - Dysphonia [Unknown]
  - Back pain [Unknown]

NARRATIVE: CASE EVENT DATE: 20221001
